FAERS Safety Report 20322285 (Version 1)
Quarter: 2022Q1

REPORT INFORMATION
  Report Type: Spontaneous
  Country: US (occurrence: None)
  Receive Date: 20220110
  Receipt Date: 20220110
  Transmission Date: 20220423
  Serious: Yes (Other)
  Sender: FDA-Public Use
  Company Number: None

PATIENT
  Age: 63 Year
  Sex: Male
  Weight: 94.5 kg

DRUGS (2)
  1. BAMLANIVIMAB [Suspect]
     Active Substance: BAMLANIVIMAB
     Indication: COVID-19
     Dosage: OTHER FREQUENCY : 1 TIME DOSE;?
     Route: 041
     Dates: start: 20220106, end: 20220106
  2. ETESEVIMAB [Suspect]
     Active Substance: ETESEVIMAB
     Indication: COVID-19
     Dosage: OTHER FREQUENCY : 1 TIME DOSE;?
     Route: 041
     Dates: start: 20220106, end: 20220106

REACTIONS (10)
  - Dyspnoea [None]
  - Infusion related reaction [None]
  - Oxygen saturation decreased [None]
  - Respiratory rate increased [None]
  - Heart rate increased [None]
  - Blood pressure increased [None]
  - Chest discomfort [None]
  - Chest pain [None]
  - Dizziness [None]
  - Tremor [None]

NARRATIVE: CASE EVENT DATE: 20220106
